FAERS Safety Report 7491272-8 (Version None)
Quarter: 2011Q2

REPORT INFORMATION
  Report Type: 
  Country: None (occurrence: None)
  Receive Date: 20110519
  Receipt Date: 20110511
  Transmission Date: 20111010
  Serious: Yes (Other)
  Sender: FDA-Public Use
  Company Number: A0927779A

PATIENT
  Sex: Male

DRUGS (2)
  1. AVODART [Suspect]
     Dosage: 1CAP PER DAY
     Route: 048
     Dates: start: 20101101
  2. LISINOPRIL [Concomitant]

REACTIONS (14)
  - INCONTINENCE [None]
  - DRUG INEFFECTIVE [None]
  - FEAR OF DEATH [None]
  - CHANGE OF BOWEL HABIT [None]
  - INCREASED APPETITE [None]
  - WEIGHT INCREASED [None]
  - INSOMNIA [None]
  - URINE FLOW DECREASED [None]
  - DYSURIA [None]
  - HALLUCINATION [None]
  - SEXUAL DYSFUNCTION [None]
  - ERECTILE DYSFUNCTION [None]
  - SUICIDAL IDEATION [None]
  - NOCTURIA [None]
